FAERS Safety Report 23175985 (Version 2)
Quarter: 2023Q4

REPORT INFORMATION
  Report Type: Spontaneous
  Country: GB (occurrence: None)
  Receive Date: 20231113
  Receipt Date: 20231114
  Transmission Date: 20240110
  Serious: Yes (Other)
  Sender: FDA-Public Use
  Company Number: GB-ROCHE-3454079

PATIENT
  Age: 21 Year
  Sex: Female
  Weight: 61.5 kg

DRUGS (1)
  1. OCREVUS [Suspect]
     Active Substance: OCRELIZUMAB
     Indication: Relapsing-remitting multiple sclerosis
     Route: 065
     Dates: start: 20220104, end: 20230709

REACTIONS (4)
  - Mouth ulceration [Not Recovered/Not Resolved]
  - Oral herpes [Not Recovered/Not Resolved]
  - Haemoptysis [Unknown]
  - Nasal ulcer [Unknown]

NARRATIVE: CASE EVENT DATE: 20230201
